FAERS Safety Report 5396430-4 (Version None)
Quarter: 2007Q3

REPORT INFORMATION
  Report Type: 
  Country: None (occurrence: None)
  Receive Date: 20070725
  Receipt Date: 20070711
  Transmission Date: 20080115
  Serious: Yes (Hospitalization, Other)
  Sender: FDA-Public Use
  Company Number: CA-ELI_LILLY_AND_COMPANY-CA200702001894

PATIENT
  Sex: Female

DRUGS (11)
  1. FORTEO [Suspect]
     Indication: OSTEOPOROSIS
     Dosage: 20 UG, DAILY (1/D)
     Route: 058
     Dates: start: 20060531, end: 20070701
  2. ASPIRIN [Concomitant]
  3. ALTACE [Concomitant]
  4. HYDROCHLOROTHIAZIDE [Concomitant]
  5. LIPITOR [Concomitant]
  6. LORAZEPAM [Concomitant]
  7. SINEMET [Concomitant]
  8. CALCIUM CHLORIDE [Concomitant]
  9. VITAMIN D [Concomitant]
  10. GLYCERYL TRINITRATE [Concomitant]
  11. NITROGLYCERIN [Concomitant]
     Dosage: UNK, AS NEEDED

REACTIONS (2)
  - HIP ARTHROPLASTY [None]
  - JOINT CREPITATION [None]
